FAERS Safety Report 9209330 (Version 1)
Quarter: 2013Q2

REPORT INFORMATION
  Report Type: Spontaneous
  Country: BR (occurrence: BR)
  Receive Date: 20130404
  Receipt Date: 20130404
  Transmission Date: 20140414
  Serious: Yes (Hospitalization)
  Sender: FDA-Public Use
  Company Number: BR-PFIZER INC-2013106700

PATIENT
  Age: 62 Year
  Sex: Male

DRUGS (1)
  1. FRONTAL [Suspect]
     Dosage: UNK, 1X/DAY
     Route: 048
     Dates: start: 20080402

REACTIONS (1)
  - Neoplasm malignant [Unknown]
